FAERS Safety Report 18373284 (Version 1)
Quarter: 2020Q4

REPORT INFORMATION
  Report Type: Spontaneous
  Country: US (occurrence: US)
  Receive Date: 20201012
  Receipt Date: 20201012
  Transmission Date: 20210114
  Serious: No
  Sender: FDA-Public Use
  Company Number: US-JUBILANT CADISTA PHARMACEUTICALS-2020JUB00094

PATIENT
  Age: 78 Year
  Sex: Female
  Weight: 77.55 kg

DRUGS (3)
  1. PREDNISONE. [Suspect]
     Active Substance: PREDNISONE
     Indication: EYE INFLAMMATION
     Dosage: 10 MG, 1X/DAY
     Route: 048
  2. XELJANZ XR [Concomitant]
     Active Substance: TOFACITINIB CITRATE
     Dosage: UNK
  3. ACETAZOLAMIDE (LANNETT) [Concomitant]
     Active Substance: ACETAZOLAMIDE
     Dosage: 125 MG, 2X/DAY
     Route: 048

REACTIONS (1)
  - Drug ineffective [Not Recovered/Not Resolved]

NARRATIVE: CASE EVENT DATE: 20200306
